FAERS Safety Report 25452004 (Version 1)
Quarter: 2025Q2

REPORT INFORMATION
  Report Type: Spontaneous
  Country: US (occurrence: US)
  Receive Date: 20250618
  Receipt Date: 20250618
  Transmission Date: 20250716
  Serious: Yes (Hospitalization)
  Sender: BEXIMCO PHARMACEUTICALS
  Company Number: US-BEXIMCO-2025BEX00037

PATIENT
  Age: 13 Year
  Sex: Female

DRUGS (2)
  1. METFORMIN HYDROCHLORIDE [Suspect]
     Active Substance: METFORMIN HYDROCHLORIDE
     Indication: Suicide attempt
     Route: 048
  2. SERTRALINE [Concomitant]
     Active Substance: SERTRALINE HYDROCHLORIDE

REACTIONS (3)
  - Cardiac dysfunction [Recovered/Resolved]
  - Cardiotoxicity [Recovered/Resolved]
  - Intentional overdose [Unknown]
